FAERS Safety Report 10839916 (Version 1)
Quarter: 2015Q1

REPORT INFORMATION
  Report Type: Spontaneous
  Country: US (occurrence: None)
  Receive Date: 20150218
  Receipt Date: 20150218
  Transmission Date: 20150721
  Serious: Yes (Death)
  Sender: FDA-Public Use
  Company Number: 2732882

PATIENT
  Sex: Male

DRUGS (2)
  1. LIDOCAINE HCL INJ, USP (LIDOCAINE HYDROCHLORIDE) [Suspect]
     Active Substance: LIDOCAINE HYDROCHLORIDE
     Indication: MEDICATION DILUTION
     Dosage: 2.1 ML MILLILITRE(S), UNKNOWN, UNKNOWN
  2. CEFTRIAXONE SODIUM. [Suspect]
     Active Substance: CEFTRIAXONE SODIUM
     Indication: PRODUCT USED FOR UNKNOWN INDICATION
     Dosage: NOT REPORTED, NOT REPORTED, UNKNOWN, UNKNOWN

REACTIONS (1)
  - Anaphylactic reaction [None]
